FAERS Safety Report 6242056-X (Version None)
Quarter: 2009Q2

REPORT INFORMATION
  Report Type: 
  Country: None (occurrence: None)
  Receive Date: 20090622
  Receipt Date: 20090605
  Transmission Date: 20091009
  Serious: Yes (Hospitalization)
  Sender: FDA-Public Use
  Company Number: 8047504

PATIENT
  Age: 61 Year
  Sex: Female
  Weight: 50.5 kg

DRUGS (10)
  1. CDP870 [Suspect]
     Indication: RHEUMATOID ARTHRITIS
     Dosage: 1/2W SC
     Route: 058
     Dates: start: 20090223, end: 20090518
  2. PLACEBO [Suspect]
     Indication: RHEUMATOID ARTHRITIS
     Dosage: SC
     Route: 058
     Dates: start: 20090223, end: 20090518
  3. METHOTREXATE [Concomitant]
  4. PREDNISOLONE [Concomitant]
  5. FOLIC ACID [Concomitant]
  6. ISONIAZID [Concomitant]
  7. ALENDRONATE SODIUM [Concomitant]
  8. PYRIDOXAL PHOSPHATE [Concomitant]
  9. TEPRENONE [Concomitant]
  10. LOXOPROFEN SODIUM [Concomitant]

REACTIONS (16)
  - ARTHRALGIA [None]
  - BACTERIAL INFECTION [None]
  - BLOOD CULTURE POSITIVE [None]
  - DEHYDRATION [None]
  - DYSURIA [None]
  - FIBULA FRACTURE [None]
  - HEPATIC FUNCTION ABNORMAL [None]
  - IMMUNOSUPPRESSION [None]
  - JOINT SWELLING [None]
  - NECROTISING FASCIITIS [None]
  - PYELONEPHRITIS [None]
  - PYREXIA [None]
  - RENAL IMPAIRMENT [None]
  - SOFT TISSUE INFECTION [None]
  - UROSEPSIS [None]
  - VOMITING [None]
